FAERS Safety Report 6617177-X (Version None)
Quarter: 2010Q1

REPORT INFORMATION
  Report Type: 
  Country: None (occurrence: None)
  Receive Date: 20100307
  Receipt Date: 20080710
  Transmission Date: 20100710
  Serious: No
  Sender: FDA-Public Use
  Company Number: US-BAYER-200827595NA

PATIENT
  Sex: Male

DRUGS (1)
  1. CIPRO [Suspect]
     Indication: EAR INFECTION
     Dosage: 2 TABS FOR 9 DAYS OUT OF A 10 DAY PRESCRIPTION

REACTIONS (1)
  - TENDON RUPTURE [None]
